FAERS Safety Report 5006269-7 (Version None)
Quarter: 2006Q2

REPORT INFORMATION
  Report Type: 
  Country: None (occurrence: None)
  Receive Date: 20060519
  Receipt Date: 20030521
  Transmission Date: 20061013
  Serious: Yes (Life-Threatening, Hospitalization, Other)
  Sender: FDA-Public Use
  Company Number: FR-SANOFI-SYNTHELABO-F01200300494

PATIENT
  Sex: Female

DRUGS (13)
  1. OXALIPLATIN [Suspect]
     Dosage: 100 MG/M2 ON DAY 2 OF A 15-DAY CYCLE
     Route: 042
     Dates: start: 20030314, end: 20030314
  2. GEMCITABINE [Suspect]
     Dosage: 100 MG/M2 ON DAY 1 OF A 15-DAY CYCLE
     Route: 042
     Dates: start: 20030313, end: 20030313
  3. PANCREATIN TRIPLE STRENGTH CAP [Concomitant]
     Dosage: 450 MG
     Route: 065
     Dates: start: 20030101
  4. VITAMIN D [Concomitant]
     Dosage: UNK
     Route: 065
     Dates: start: 20030101
  5. CALCIUM PHOSPHATE [Concomitant]
     Dosage: 200 MG
     Route: 065
     Dates: start: 20030101
  6. ATARAX [Concomitant]
     Dosage: UNK
     Route: 065
  7. RYTHMOL [Concomitant]
     Dosage: 450 MG
     Route: 065
  8. MOPRAL [Concomitant]
     Dosage: 20 MG
     Route: 065
     Dates: start: 20030101
  9. ASPIRIN [Concomitant]
     Dosage: 140 MG
     Route: 065
  10. NEUPOGEN [Concomitant]
     Dosage: UNK
     Route: 065
     Dates: start: 20030314, end: 20030318
  11. XANAX [Concomitant]
     Dosage: 1.5 MG
     Route: 065
  12. DIFFU K [Concomitant]
     Dosage: 600 MG
     Route: 065
  13. DI-ANTALVIC [Concomitant]

REACTIONS (13)
  - ANOREXIA [None]
  - BLADDER OBSTRUCTION [None]
  - BLOOD CREATININE INCREASED [None]
  - DRUG HYPERSENSITIVITY [None]
  - DRUG INTOLERANCE [None]
  - INFLAMMATION [None]
  - PLEURAL EFFUSION [None]
  - PNEUMONIA [None]
  - PYREXIA [None]
  - SEPSIS [None]
  - SEPTIC SHOCK [None]
  - TRANSAMINASES INCREASED [None]
  - VENTRICULAR HYPOKINESIA [None]
